FAERS Safety Report 17018137 (Version 3)
Quarter: 2020Q2

REPORT INFORMATION
  Report Type: Report from Study
  Country: US (occurrence: US)
  Receive Date: 20191111
  Receipt Date: 20200420
  Transmission Date: 20200713
  Serious: Yes (Hospitalization)
  Sender: FDA-Public Use
  Company Number: US-ACTELION-A-US2019-197910

PATIENT
  Sex: Male
  Weight: 11.34 kg

DRUGS (2)
  1. TRACLEER [Suspect]
     Active Substance: BOSENTAN
     Indication: PULMONARY ARTERIAL HYPERTENSION
     Dosage: 32 MG, BID
     Route: 048
  2. SILDENAFIL CITRATE. [Concomitant]
     Active Substance: SILDENAFIL CITRATE

REACTIONS (5)
  - Norovirus test positive [Unknown]
  - Malaise [Unknown]
  - Respiratory syncytial virus infection [Unknown]
  - Tracheitis [Unknown]
  - Diabetes insipidus [Not Recovered/Not Resolved]
